FAERS Safety Report 14048406 (Version 2)
Quarter: 2017Q4

REPORT INFORMATION
  Report Type: Spontaneous
  Country: IT (occurrence: IT)
  Receive Date: 20171005
  Receipt Date: 20171012
  Transmission Date: 20180321
  Serious: Yes (Other)
  Sender: FDA-Public Use
  Company Number: PHHY2017IT144805

PATIENT
  Age: 40 Year
  Sex: Female

DRUGS (3)
  1. LAROXYL [Concomitant]
     Active Substance: AMITRIPTYLINE HYDROCHLORIDE
     Indication: NEURALGIA
     Dosage: 10 DF, UNK (10 POSOGOGIC UNIT)
     Route: 048
     Dates: start: 20170701, end: 20170929
  2. TACHIDOL [Concomitant]
     Active Substance: ACETAMINOPHEN\CODEINE PHOSPHATE
     Indication: PRODUCT USED FOR UNKNOWN INDICATION
     Dosage: 1 POSOLOGIC UNIT
     Route: 048
     Dates: start: 20170401, end: 20170929
  3. GILENYA [Suspect]
     Active Substance: FINGOLIMOD HYDROCHLORIDE
     Indication: MULTIPLE SCLEROSIS
     Dosage: 1 DF, QD
     Route: 048
     Dates: start: 20170629

REACTIONS (2)
  - Uterine cancer [Unknown]
  - Cervix disorder [Unknown]

NARRATIVE: CASE EVENT DATE: 20170825
